FAERS Safety Report 5308041-7 (Version None)
Quarter: 2007Q1

REPORT INFORMATION
  Report Type: 
  Country: None (occurrence: None)
  Receive Date: 20070130
  Receipt Date: 20060801
  Transmission Date: 20070707
  Serious: Yes (Hospitalization)
  Sender: FDA-Public Use
  Company Number: 443173

PATIENT
  Age: 52 Year
  Sex: Male
  Weight: 83 kg

DRUGS (5)
  1. COPEGUS [Suspect]
     Indication: HEPATITIS C
     Dosage: 600 MG 2 PER 1 DAY ORAL
     Route: 048
     Dates: start: 20060410, end: 20060502
  2. PEGASYS [Suspect]
     Indication: HEPATITIS C
     Dosage: 180 MCG/ML1 PER 1 WEEK SUBCUTANEOUS
     Route: 058
     Dates: start: 20060410
  3. COGENTIN [Suspect]
     Indication: DRUG USE FOR UNKNOWN INDICATION
     Dosage: ORAL
     Route: 048
  4. WELLBUTRIN [Concomitant]
  5. SEREVENT [Concomitant]

REACTIONS (2)
  - CHEST PAIN [None]
  - HAEMATEMESIS [None]
